FAERS Safety Report 14750613 (Version 1)
Quarter: 2018Q2

REPORT INFORMATION
  Report Type: Spontaneous
  Country: US (occurrence: US)
  Receive Date: 20180412
  Receipt Date: 20180412
  Transmission Date: 20180711
  Serious: No
  Sender: FDA-Public Use
  Company Number: US-PFIZER INC-2018148516

PATIENT
  Age: 53 Year
  Sex: Female
  Weight: 92.99 kg

DRUGS (1)
  1. LYRICA [Suspect]
     Active Substance: PREGABALIN
     Indication: NEURALGIA
     Dosage: 50 MG, 2X/DAY (MORNING AND NIGHT)
     Route: 048
     Dates: start: 20180406

REACTIONS (5)
  - Hypersomnia [Not Recovered/Not Resolved]
  - Condition aggravated [Unknown]
  - Blood pressure increased [Unknown]
  - Heart rate increased [Unknown]
  - Weight increased [Unknown]

NARRATIVE: CASE EVENT DATE: 20180407
